FAERS Safety Report 11392306 (Version 1)
Quarter: 2015Q3

REPORT INFORMATION
  Report Type: Spontaneous
  Country: US (occurrence: None)
  Receive Date: 20150817
  Receipt Date: 20150817
  Transmission Date: 20151125
  Serious: No
  Sender: FDA-Public Use
  Company Number: None

PATIENT
  Age: 53 Year
  Sex: Male
  Weight: 88.6 kg

DRUGS (1)
  1. BOCEPREVIR [Suspect]
     Active Substance: BOCEPREVIR
     Indication: HEPATITIS C
     Route: 048
     Dates: start: 20120215

REACTIONS (5)
  - Headache [None]
  - Anaemia [None]
  - Agitation [None]
  - Pyrexia [None]
  - Hallucination [None]

NARRATIVE: CASE EVENT DATE: 20120215
